FAERS Safety Report 12707609 (Version 3)
Quarter: 2016Q3

REPORT INFORMATION
  Report Type: Spontaneous
  Country: DE (occurrence: DE)
  Receive Date: 20160901
  Receipt Date: 20160919
  Transmission Date: 20161109
  Serious: Yes (Other)
  Sender: FDA-Public Use
  Company Number: DE-TEVA-688536GER

PATIENT
  Age: 55 Year
  Sex: Female
  Weight: 91.4 kg

DRUGS (4)
  1. CALCIUMFOLINAT AMNEAL 1000 MG [Concomitant]
     Indication: COLON CANCER
     Route: 042
     Dates: start: 20160726
  2. 5-FLUOROURACIL MEDAC 5000 MG [Concomitant]
     Route: 042
  3. 5-FLUOROURACIL MEDAC 5000 MG [Concomitant]
     Indication: COLON CANCER
     Route: 042
     Dates: start: 20160726
  4. OXALIPLATIN AUROBINDO 5 MG/ML CONCENTRATE FOR SOLUTION [Suspect]
     Active Substance: OXALIPLATIN
     Indication: COLON CANCER
     Dosage: 136 MILLIGRAM DAILY;
     Route: 042
     Dates: start: 20160810

REACTIONS (3)
  - Anaphylactic reaction [Recovered/Resolved]
  - Dermatitis allergic [Recovered/Resolved]
  - Rash [Unknown]

NARRATIVE: CASE EVENT DATE: 20160810
